FAERS Safety Report 23736207 (Version 1)
Quarter: 2024Q2

REPORT INFORMATION
  Report Type: Report from Study
  Country: BR (occurrence: BR)
  Receive Date: 20240412
  Receipt Date: 20240412
  Transmission Date: 20240716
  Serious: Yes (Other)
  Sender: FDA-Public Use
  Company Number: BR-AMGEN-BRASL2023232670

PATIENT
  Age: 46 Year
  Sex: Male

DRUGS (5)
  1. VECTIBIX [Suspect]
     Active Substance: PANITUMUMAB
     Indication: Colorectal cancer metastatic
     Dosage: UNK, EVERY 15 DAY, PORT-A-CATH
     Route: 042
     Dates: start: 20231213, end: 20231213
  2. VECTIBIX [Suspect]
     Active Substance: PANITUMUMAB
     Indication: Gastrointestinal carcinoma
     Dosage: UNK
     Route: 042
  3. URSODIOL [Concomitant]
     Active Substance: URSODIOL
     Dosage: 4 DOSAGE FORM, QD
  4. URSODIOL [Concomitant]
     Active Substance: URSODIOL
     Dosage: UNK UNK, BID, 2 TABLETS IN THE MORNING AND 2 TABLETS AT NIGHT
  5. APIXABAN [Concomitant]
     Active Substance: APIXABAN
     Dosage: 5 MILLIGRAM, BID, 1 TABLET IN THE MORNING AND 1 TABLET AT NIGHT

REACTIONS (16)
  - Thrombosis [Unknown]
  - Illness [Recovering/Resolving]
  - Oropharyngeal pain [Unknown]
  - Thirst [Unknown]
  - Oral disorder [Recovering/Resolving]
  - Malaise [Recovering/Resolving]
  - Insomnia [Unknown]
  - Pruritus [Recovering/Resolving]
  - Acne [Recovering/Resolving]
  - Decreased appetite [Recovering/Resolving]
  - Diarrhoea [Recovering/Resolving]
  - Rash pustular [Recovering/Resolving]
  - Asthenia [Recovering/Resolving]
  - Pyrexia [Unknown]
  - Weight decreased [Recovering/Resolving]
  - Dehydration [Recovering/Resolving]

NARRATIVE: CASE EVENT DATE: 20231201
